FAERS Safety Report 6793554-1 (Version None)
Quarter: 2010Q2

REPORT INFORMATION
  Report Type: 
  Country: None (occurrence: None)
  Receive Date: 20100624
  Receipt Date: 20090226
  Transmission Date: 20101027
  Serious: No
  Sender: FDA-Public Use
  Company Number: US-PFIZER INC-2008100384

PATIENT
  Sex: Male
  Weight: 92.7 kg

DRUGS (2)
  1. GEODON [Suspect]
     Indication: BORDERLINE PERSONALITY DISORDER
     Dosage: 60 MG, 1X/DAY
     Route: 048
     Dates: start: 20030101
  2. CARBAMAZEPINE [Concomitant]
     Dosage: 400 MG/DAY
     Route: 048

REACTIONS (2)
  - BREATH SOUNDS ABNORMAL [None]
  - DYSPNOEA [None]
